FAERS Safety Report 22654926 (Version 1)
Quarter: 2023Q2

REPORT INFORMATION
  Report Type: Spontaneous
  Country: US (occurrence: None)
  Receive Date: 20230628
  Receipt Date: 20230628
  Transmission Date: 20230721
  Serious: No
  Sender: FDA-Public Use
  Company Number: None

PATIENT
  Age: 54 Year
  Sex: Female

DRUGS (1)
  1. RENFLEXIS [Suspect]
     Active Substance: INFLIXIMAB-ABDA
     Indication: Crohn^s disease
     Dosage: 500 MG  EVERY 8 WEEKS INTRAVENOUS?
     Route: 042
     Dates: start: 202305, end: 202306

REACTIONS (3)
  - Therapy cessation [None]
  - Drug specific antibody [None]
  - Adverse drug reaction [None]

NARRATIVE: CASE EVENT DATE: 20230501
